FAERS Safety Report 8523949-7 (Version None)
Quarter: 2012Q3

REPORT INFORMATION
  Report Type: 
  Country: None (occurrence: None)
  Receive Date: 20120720
  Receipt Date: 20120711
  Transmission Date: 20120928
  Serious: Yes (Other)
  Sender: FDA-Public Use
  Company Number: US-CELGENEUS-163-21880-12071277

PATIENT
  Sex: Male
  Weight: 81.266 kg

DRUGS (3)
  1. ATENOLOL [Concomitant]
     Route: 065
  2. AMLODIPINE [Concomitant]
     Route: 065
  3. REVLIMID [Suspect]
     Dosage: 25 MILLIGRAM
     Route: 048
     Dates: start: 20120418, end: 20120711

REACTIONS (1)
  - CARDIAC DISORDER [None]
